FAERS Safety Report 8072874-7 (Version None)
Quarter: 2012Q1

REPORT INFORMATION
  Report Type: 
  Country: None (occurrence: None)
  Receive Date: 20120126
  Receipt Date: 20120117
  Transmission Date: 20120608
  Serious: Yes (Other)
  Sender: FDA-Public Use
  Company Number: AU-UCBSA-038915

PATIENT
  Age: 45 Year
  Sex: Female

DRUGS (2)
  1. CIMZIA [Suspect]
     Route: 058
  2. CIMZIA [Suspect]
     Route: 058

REACTIONS (1)
  - DERMATITIS PSORIASIFORM [None]
